FAERS Safety Report 4872528-1 (Version None)
Quarter: 2005Q4

REPORT INFORMATION
  Report Type: 
  Country: None (occurrence: None)
  Receive Date: 20051230
  Receipt Date: 20051230
  Transmission Date: 20060501
  Serious: Yes (Death)
  Sender: FDA-Public Use
  Company Number: None

PATIENT
  Age: 76 Year
  Sex: Male
  Weight: 70.8 kg

DRUGS (22)
  1. WARFARIN SODIUM [Suspect]
     Indication: ATRIAL FIBRILLATION
     Dosage: 5 MG DAILY PO
     Route: 048
  2. AZITHROMYCIN [Concomitant]
  3. ABSORBASE [Concomitant]
  4. ACETAMINOPHEN [Concomitant]
  5. CARVEDILOL [Concomitant]
  6. CEPACOL LOZENGE [Concomitant]
  7. DIGOXIN [Concomitant]
  8. DIVALPROEX ENTERIC COATED, EC [Concomitant]
  9. DIVALPROEX SODIUM [Concomitant]
  10. DOCUSATE [Concomitant]
  11. FERROUS SULFATE TAB [Concomitant]
  12. FLUNISOLIDE INHL [Concomitant]
  13. FOSINOPRIL [Concomitant]
  14. FUROSEMIDE [Concomitant]
  15. GLIMEPIRIDE [Concomitant]
  16. GUAIFENESIN [Concomitant]
  17. INSULIN GLARGINE-HUMAN [Concomitant]
  18. LORAZEPAM [Concomitant]
  19. OLANZAPINE [Concomitant]
  20. POTASSIUM CHLORIDE [Concomitant]
  21. HUMULIN R [Concomitant]
  22. LEVOTHYROXINE SODIUM [Concomitant]

REACTIONS (4)
  - FALL [None]
  - HAEMORRHAGE INTRACRANIAL [None]
  - INTERNATIONAL NORMALISED RATIO INCREASED [None]
  - INTRACRANIAL PRESSURE INCREASED [None]
